FAERS Safety Report 25192170 (Version 1)
Quarter: 2025Q2

REPORT INFORMATION
  Report Type: Spontaneous
  Country: FR (occurrence: FR)
  Receive Date: 20250414
  Receipt Date: 20250414
  Transmission Date: 20250717
  Serious: Yes (Hospitalization)
  Sender: MYLAN
  Company Number: None

PATIENT
  Age: 16 Year
  Sex: Male

DRUGS (4)
  1. ACETAMINOPHEN [Suspect]
     Active Substance: ACETAMINOPHEN
     Indication: Procedural pain
     Dosage: 5 MILLIGRAM, QD
     Dates: start: 20240620, end: 20240620
  2. DESLORATADINE [Suspect]
     Active Substance: DESLORATADINE
     Indication: Urticaria
     Dosage: 5 MILLIGRAM, QD
     Dates: start: 20240620, end: 20240620
  3. PRISTINAMYCIN [Suspect]
     Active Substance: PRISTINAMYCIN
     Indication: Prophylaxis
     Dates: start: 20240620, end: 20240620
  4. CODEINE [Suspect]
     Active Substance: CODEINE
     Indication: Procedural pain
     Dates: start: 20240620, end: 20240620

REACTIONS (1)
  - Pancreatitis acute [Recovered/Resolved]

NARRATIVE: CASE EVENT DATE: 20240620
